FAERS Safety Report 14093601 (Version 1)
Quarter: 2017Q4

REPORT INFORMATION
  Report Type: Spontaneous
  Country: NZ (occurrence: NZ)
  Receive Date: 20171016
  Receipt Date: 20171016
  Transmission Date: 20180321
  Serious: Yes (Other)
  Sender: FDA-Public Use
  Company Number: NZ-IPSEN BIOPHARMACEUTICALS, INC.-2017-11868

PATIENT
  Age: 46 Year
  Sex: Female

DRUGS (3)
  1. BOTULINUM TOXIN TYPE A NOS [Suspect]
     Active Substance: BOTULINUM TOXIN TYPE A
     Indication: OESOPHAGEAL ACHALASIA
     Dosage: 100 UNITS
     Route: 065
  2. BOTULINUM TOXIN TYPE A NOS [Suspect]
     Active Substance: BOTULINUM TOXIN TYPE A
     Indication: OFF LABEL USE
  3. BOTULINUM TOXIN TYPE A NOS [Suspect]
     Active Substance: BOTULINUM TOXIN TYPE A
     Indication: DYSKINESIA OESOPHAGEAL

REACTIONS (4)
  - Mediastinitis [Recovered/Resolved]
  - Liver abscess [Recovered/Resolved]
  - Oesophageal infection [Recovered/Resolved]
  - Off label use [Unknown]
